FAERS Safety Report 25404929 (Version 1)
Quarter: 2025Q2

REPORT INFORMATION
  Report Type: Spontaneous
  Country: US (occurrence: US)
  Receive Date: 20250606
  Receipt Date: 20250606
  Transmission Date: 20250717
  Serious: No
  Sender: PIERRE FABRE MEDICAMENT
  Company Number: US-PFM-2024-04810

PATIENT
  Sex: Female
  Weight: 7.519 kg

DRUGS (1)
  1. HEMANGEOL [Suspect]
     Active Substance: PROPRANOLOL HYDROCHLORIDE
     Indication: Haemangioma
     Dosage: 2.6 ML, BID (2/DAY)

REACTIONS (4)
  - Crying [Recovering/Resolving]
  - Respiration abnormal [Recovering/Resolving]
  - Nasopharyngitis [Recovering/Resolving]
  - Irritability [Recovering/Resolving]
